FAERS Safety Report 9918296 (Version 2)
Quarter: 2014Q2

REPORT INFORMATION
  Report Type: Report from Study
  Country: DE (occurrence: DE)
  Receive Date: 20140224
  Receipt Date: 20140516
  Transmission Date: 20141212
  Serious: Yes (Other)
  Sender: FDA-Public Use
  Company Number: DE-ROCHE-1353291

PATIENT
  Age: 59 Year
  Sex: Female

DRUGS (2)
  1. RANIBIZUMAB [Suspect]
     Indication: VISUAL IMPAIRMENT
     Dosage: MOST RECENT DOSE RECEIVED ON: 30/SEP/2013
     Route: 050
     Dates: start: 20120816
  2. RANIBIZUMAB [Suspect]
     Indication: DIABETIC RETINAL OEDEMA

REACTIONS (3)
  - Diabetic retinopathy [Unknown]
  - Vitreous haemorrhage [Unknown]
  - Visual acuity reduced [Unknown]
